FAERS Safety Report 5597046-7 (Version None)
Quarter: 2008Q1

REPORT INFORMATION
  Report Type: 
  Country: None (occurrence: None)
  Receive Date: 20080121
  Receipt Date: 20080108
  Transmission Date: 20080703
  Serious: Yes (Death)
  Sender: FDA-Public Use
  Company Number: US-TEVA-166480USA

PATIENT
  Age: 56 Year
  Sex: Male

DRUGS (4)
  1. NIFEDIPINE 10 MG CAPSULES [Suspect]
     Route: 048
  2. DIAZEPAM [Suspect]
     Route: 048
  3. GLIPIZIDE [Suspect]
     Route: 048
  4. PROPRANOLOL [Suspect]
     Route: 048

REACTIONS (1)
  - OVERDOSE [None]
